FAERS Safety Report 18957773 (Version 1)
Quarter: 2021Q1

REPORT INFORMATION
  Report Type: Spontaneous
  Country: US (occurrence: US)
  Receive Date: 20210302
  Receipt Date: 20210302
  Transmission Date: 20210420
  Serious: Yes (Hospitalization)
  Sender: FDA-Public Use
  Company Number: None

PATIENT
  Age: 56 Year
  Sex: Female
  Weight: 64 kg

DRUGS (3)
  1. TAXOTERE [Suspect]
     Active Substance: DOCETAXEL
     Dates: end: 20210217
  2. HERCEPTIN [Suspect]
     Active Substance: TRASTUZUMAB
     Dates: end: 20210217
  3. PERTUZUMAB. [Suspect]
     Active Substance: PERTUZUMAB
     Dates: end: 20210217

REACTIONS (10)
  - Hypophagia [None]
  - Diarrhoea [None]
  - Headache [None]
  - Nausea [None]
  - Abdominal pain upper [None]
  - Gastrooesophageal reflux disease [None]
  - Vomiting [None]
  - Abdominal pain [None]
  - Chest pain [None]
  - Throat irritation [None]

NARRATIVE: CASE EVENT DATE: 20210223
